FAERS Safety Report 8075525-0 (Version None)
Quarter: 2012Q1

REPORT INFORMATION
  Report Type: 
  Country: None (occurrence: None)
  Receive Date: 20120127
  Receipt Date: 20120125
  Transmission Date: 20120608
  Serious: Yes (Other)
  Sender: FDA-Public Use
  Company Number: US-PFIZER INC-2012021160

PATIENT
  Sex: Female

DRUGS (3)
  1. PRAVASTATIN [Suspect]
     Indication: BLOOD CHOLESTEROL INCREASED
     Dosage: UNK
     Dates: start: 20110101
  2. CRESTOR [Suspect]
     Indication: BLOOD CHOLESTEROL INCREASED
     Dosage: UNK
     Dates: start: 20110101
  3. LIPITOR [Suspect]
     Indication: BLOOD CHOLESTEROL INCREASED
     Dosage: 40 MG, DAILY
     Dates: start: 20110101, end: 20110101

REACTIONS (7)
  - MYOCARDIAL INFARCTION [None]
  - NAUSEA [None]
  - WEIGHT INCREASED [None]
  - ABDOMINAL DISCOMFORT [None]
  - FLATULENCE [None]
  - ALOPECIA [None]
  - FEELING ABNORMAL [None]
